FAERS Safety Report 14309406 (Version 1)
Quarter: 2017Q4

REPORT INFORMATION
  Report Type: Spontaneous
  Country: IT (occurrence: IT)
  Receive Date: 20171220
  Receipt Date: 20171220
  Transmission Date: 20180321
  Serious: Yes (Hospitalization)
  Sender: FDA-Public Use
  Company Number: IT-TEVA-2017-IT-836420

PATIENT
  Age: 33 Year
  Sex: Male

DRUGS (3)
  1. AMITRIPTYLINE [Suspect]
     Active Substance: AMITRIPTYLINE
     Route: 048
     Dates: start: 20171105, end: 20171105
  2. DIAZEPAM. [Suspect]
     Active Substance: DIAZEPAM
     Route: 048
     Dates: start: 20171105, end: 20171105
  3. METHADONE HYDROCHLORIDE. [Concomitant]
     Active Substance: METHADONE HYDROCHLORIDE
     Indication: DRUG WITHDRAWAL SYNDROME
     Route: 048
     Dates: start: 20160101

REACTIONS (3)
  - Sopor [Recovered/Resolved]
  - Intentional self-injury [Recovered/Resolved]
  - Overdose [Recovered/Resolved]

NARRATIVE: CASE EVENT DATE: 20171105
